FAERS Safety Report 7914083-5 (Version None)
Quarter: 2011Q4

REPORT INFORMATION
  Report Type: 
  Country: None (occurrence: None)
  Receive Date: 20111115
  Receipt Date: 20111107
  Transmission Date: 20120403
  Serious: Yes (Hospitalization)
  Sender: FDA-Public Use
  Company Number: US-ELI_LILLY_AND_COMPANY-US201111001976

PATIENT
  Age: 60 Year
  Sex: Male
  Weight: 101.9 kg

DRUGS (6)
  1. GEMCITABINE HYDROCHLORIDE [Suspect]
     Indication: TRANSITIONAL CELL CARCINOMA
     Dosage: 1000 MG/M2, DAYS 1, 8 EVERY 21 DAYS
     Route: 042
     Dates: start: 20110629
  2. CISPLATIN [Suspect]
     Indication: TRANSITIONAL CELL CARCINOMA
     Dosage: 70 MG/M2, DAY 1 EVERY 21 DAYS
     Route: 042
     Dates: start: 20110629
  3. GEMCITABINE HYDROCHLORIDE [Suspect]
     Dosage: 750 MG/M2, CYCLE 1, DAY 8
     Route: 042
     Dates: start: 20110706, end: 20110831
  4. CISPLATIN [Suspect]
     Dosage: 50 MG/M2, OTHER
     Route: 042
     Dates: start: 20110720, end: 20110831
  5. BEVACIZUMAB [Suspect]
     Indication: TRANSITIONAL CELL CARCINOMA
     Dosage: UNK
     Dates: start: 20110629, end: 20110831
  6. CISPLATIN [Suspect]
     Dosage: 35 MG/M2, DAY 1,8 OF CYCLE1
     Route: 042
     Dates: start: 20110720, end: 20110831

REACTIONS (6)
  - SKIN INFECTION [None]
  - DYSPNOEA [None]
  - URINARY TRACT INFECTION [None]
  - BACTERAEMIA [None]
  - URINARY TRACT OBSTRUCTION [None]
  - PLEURAL EFFUSION [None]
